FAERS Safety Report 8064562-8 (Version None)
Quarter: 2012Q1

REPORT INFORMATION
  Report Type: 
  Country: None (occurrence: None)
  Receive Date: 20120123
  Receipt Date: 20120112
  Transmission Date: 20120608
  Serious: Yes (Hospitalization)
  Sender: FDA-Public Use
  Company Number: US-ASTRAZENECA-2011SE41410

PATIENT
  Age: 57 Year
  Sex: Female

DRUGS (3)
  1. DEXILANT [Suspect]
     Route: 065
  2. NEXIUM [Suspect]
     Route: 048
  3. OMEPRAZOLE [Suspect]
     Route: 048

REACTIONS (11)
  - OESOPHAGEAL DISORDER [None]
  - GASTROOESOPHAGEAL REFLUX DISEASE [None]
  - GASTRIC PERFORATION [None]
  - WEIGHT DECREASED [None]
  - APHAGIA [None]
  - DRUG INEFFECTIVE [None]
  - CHOKING [None]
  - BURNING SENSATION [None]
  - DRUG DOSE OMISSION [None]
  - ROAD TRAFFIC ACCIDENT [None]
  - NAUSEA [None]
